FAERS Safety Report 5921537-X (Version None)
Quarter: 2008Q3

REPORT INFORMATION
  Report Type: 
  Country: None (occurrence: None)
  Receive Date: 20080909
  Receipt Date: 20071114
  Transmission Date: 20090109
  Serious: Yes (Death)
  Sender: FDA-Public Use
  Company Number: 163-20785-07081945

PATIENT
  Age: 41 Year
  Sex: Female

DRUGS (1)
  1. THALOMID [Suspect]
     Indication: MALIGNANT GLIOMA
     Dosage: 1200 MG, QD, ORAL
     Route: 048
     Dates: start: 20070720, end: 20070801

REACTIONS (2)
  - BRAIN HERNIATION [None]
  - NEOPLASM PROGRESSION [None]
